FAERS Safety Report 19415191 (Version 2)
Quarter: 2021Q4

REPORT INFORMATION
  Report Type: Report from Study
  Country: US (occurrence: None)
  Receive Date: 20210615
  Receipt Date: 20211210
  Transmission Date: 20220303
  Serious: Yes (Hospitalization)
  Sender: FDA-Public Use
  Company Number: US-ROCHE-2826294

PATIENT
  Age: 77 Year
  Sex: Male
  Weight: 64.2 kg

DRUGS (4)
  1. OBINUTUZUMAB [Suspect]
     Active Substance: OBINUTUZUMAB
     Indication: Chronic lymphocytic leukaemia
     Dosage: 100 MG IV ON C1D1
     Route: 042
     Dates: start: 20210216
  2. OBINUTUZUMAB [Suspect]
     Active Substance: OBINUTUZUMAB
     Dosage: 900 MG IV ON C1D2
     Route: 042
  3. OBINUTUZUMAB [Suspect]
     Active Substance: OBINUTUZUMAB
     Dosage: 1000 MG IV ON C1D8 + C1D15, C2-6D1?TOTAL DOSE ADMINISTERED THIS COURSE (DOSE): 1000 MG  LAST ADMINIS
     Route: 042
  4. IBRUTINIB [Suspect]
     Active Substance: IBRUTINIB
     Indication: Chronic lymphocytic leukaemia
     Dosage: 420 MG PO QD FOR 15 CYCLES?TOTAL DOSE ADMINISTERED THIS COURSE (DOSE): 1680 MG  LAST ADMINISTRATION
     Route: 048
     Dates: start: 20210216

REACTIONS (3)
  - Abdominal pain [Recovered/Resolved]
  - Diarrhoea [Recovered/Resolved]
  - Pyrexia [Recovered/Resolved]

NARRATIVE: CASE EVENT DATE: 20210318
